FAERS Safety Report 11431114 (Version 1)
Quarter: 2015Q3

REPORT INFORMATION
  Report Type: Spontaneous
  Country: US (occurrence: US)
  Receive Date: 20150828
  Receipt Date: 20150828
  Transmission Date: 20151125
  Serious: No
  Sender: FDA-Public Use
  Company Number: PHEH2014US022049

PATIENT
  Sex: Female

DRUGS (2)
  1. ESTRADERM [Suspect]
     Active Substance: ESTRADIOL
     Indication: PRODUCT USED FOR UNKNOWN INDICATION
     Dosage: 0.05 MG, UNK
     Route: 062
  2. ESTRADERM [Suspect]
     Active Substance: ESTRADIOL
     Dosage: 0.037 UKN, UNK
     Route: 062

REACTIONS (5)
  - Drug intolerance [Unknown]
  - Urinary tract infection [Unknown]
  - Cystitis [Unknown]
  - Abdominal distension [Unknown]
  - Bladder pain [Unknown]
